FAERS Safety Report 4384630-1 (Version None)
Quarter: 2004Q2

REPORT INFORMATION
  Report Type: 
  Country: None (occurrence: None)
  Receive Date: 20040621
  Receipt Date: 20040610
  Transmission Date: 20050107
  Serious: Yes (Hospitalization)
  Sender: FDA-Public Use
  Company Number: 2004014259

PATIENT
  Age: 64 Year
  Sex: Female

DRUGS (1)
  1. LIPITOR [Suspect]
     Indication: HYPERLIPIDAEMIA
     Dosage: 5 MG (DAILY),ORAL
     Route: 048
     Dates: start: 20020824, end: 20040212

REACTIONS (4)
  - DIABETES MELLITUS [None]
  - MUSCLE CRAMP [None]
  - OCCULT BLOOD POSITIVE [None]
  - RED BLOOD CELLS URINE POSITIVE [None]
